FAERS Safety Report 20414387 (Version 2)
Quarter: 2022Q1

REPORT INFORMATION
  Report Type: Spontaneous
  Country: EG (occurrence: EG)
  Receive Date: 20220202
  Receipt Date: 20220210
  Transmission Date: 20220423
  Serious: Yes (Life-Threatening, Hospitalization, Other)
  Sender: FDA-Public Use
  Company Number: EG-NOVOPROD-886233

PATIENT
  Age: 60 Year
  Sex: Male
  Weight: 146 kg

DRUGS (6)
  1. CHONDROITIN SULFATE (BOVINE)\DIMETHYL SULFONE\GLUCOSAMINE SULFATE [Concomitant]
     Active Substance: CHONDROITIN SULFATE (BOVINE)\DIMETHYL SULFONE\GLUCOSAMINE SULFATE
     Indication: Arthralgia
     Dosage: 2 ORAL TAB./DAY , 1 YEARS AGO AND ONGOING
     Route: 048
  2. INSULIN HUMAN [Suspect]
     Active Substance: INSULIN HUMAN
     Indication: Diabetes mellitus
     Dosage: 50 IU/MORN. + 30 IU/NIGHT OR 50 IU/MORN. + 20 IU/NIGHT OR 40 IU/MORN. + 40 IU/NIGHT
     Route: 058
     Dates: start: 202110
  3. NEUROVIT E [Concomitant]
     Indication: Neuropathy peripheral
     Dosage: 3 IM INJECTIONS PER WEEK
     Route: 030
  4. NEUROVIT E [Concomitant]
     Dosage: OR 2 ORAL TAB PER DAY 10 OR 15 YEARS AGO AND ONGOING
     Route: 048
  5. BENFOTIAMINE\CYANOCOBALAMIN\PYRIDOXINE HYDROCHLORIDE [Concomitant]
     Active Substance: BENFOTIAMINE\CYANOCOBALAMIN\PYRIDOXINE HYDROCHLORIDE
     Indication: Neuropathy peripheral
     Dosage: 2 ORAL TAB,/DAY 5 OR 7 YEARS AGO
     Route: 048
  6. GLUCOPHAGE [Concomitant]
     Active Substance: METFORMIN HYDROCHLORIDE
     Indication: Diabetes mellitus
     Dosage: 1 ORAL TAB./DAY BUT NOT REGULARLY, 1 YEAR AGO
     Route: 048

REACTIONS (4)
  - Road traffic accident [Recovered/Resolved]
  - Fall [Not Recovered/Not Resolved]
  - Forearm fracture [Not Recovered/Not Resolved]
  - Hypoglycaemic coma [Recovered/Resolved]

NARRATIVE: CASE EVENT DATE: 20211210
